FAERS Safety Report 21597769 (Version 1)
Quarter: 2022Q4

REPORT INFORMATION
  Report Type: Spontaneous
  Country: CA (occurrence: CA)
  Receive Date: 20221115
  Receipt Date: 20221115
  Transmission Date: 20230113
  Serious: Yes (Life-Threatening)
  Sender: FDA-Public Use
  Company Number: CA-ORGANON-O2211CAN001317

PATIENT
  Age: 29 Year
  Sex: Female
  Weight: 125 kg

DRUGS (3)
  1. NUVARING [Suspect]
     Active Substance: ETHINYL ESTRADIOL\ETONOGESTREL
     Dosage: DOSAGE FORM REPORTED AS NOT SPECIFIED, 1 DOSAGE FORM, 1 EVERY 21 DAYS
     Route: 067
  2. NIFEDIPINE [Concomitant]
     Active Substance: NIFEDIPINE
     Dosage: UNK
     Route: 065
  3. SERTRALINE [Concomitant]
     Active Substance: SERTRALINE HYDROCHLORIDE
     Dosage: UNK
     Route: 065

REACTIONS (2)
  - Cardio-respiratory arrest [Recovered/Resolved]
  - Pulmonary embolism [Recovered/Resolved]
